FAERS Safety Report 8538722-3 (Version None)
Quarter: 2012Q3

REPORT INFORMATION
  Report Type: 
  Country: None (occurrence: None)
  Receive Date: 20120726
  Receipt Date: 20120720
  Transmission Date: 20120928
  Serious: Yes (Hospitalization)
  Sender: FDA-Public Use
  Company Number: US-BAYER-2011-077319

PATIENT
  Age: 18 Year
  Sex: Female
  Weight: 57 kg

DRUGS (14)
  1. DOXYCYCLINE [Concomitant]
     Indication: SKIN LESION
     Dosage: 100 MG, 1 TABLET QD
     Route: 048
  2. HYDROCODONE BITARTRATE + ACETAMINOPHEN [Concomitant]
     Dosage: 5-325 MG
     Route: 048
  3. HYDROCORTISONE [Concomitant]
  4. HYDROCORTISONE [Concomitant]
     Route: 061
  5. YASMIN [Suspect]
     Indication: ACNE
  6. YASMIN [Suspect]
     Indication: OVARIAN CYST
  7. CARAFATE [Concomitant]
     Dosage: 100 MG/ML, 1 TEASPOONFUL
     Route: 048
  8. MORPHINE SULFATE [Concomitant]
  9. YASMIN [Suspect]
     Indication: CONTRACEPTION
     Dosage: UNK
     Dates: start: 20060128, end: 20091118
  10. KINEVAC [Concomitant]
     Dosage: 5 ?G, UNK
  11. PROTONIX [Concomitant]
     Dosage: 40 MG, 1 TABLET, BID
     Route: 048
  12. METRONIDAZOLE [Concomitant]
     Dosage: 250 MG, 1 TABLET, QID
     Route: 048
  13. ZOFRAN [Concomitant]
     Dosage: 4 MG, UNK
     Route: 042
  14. MICROGESTIN FE 1.5/30 [Concomitant]
     Dosage: 1.5-30 MG-MCG
     Route: 048
     Dates: start: 20091101, end: 20101201

REACTIONS (2)
  - GALLBLADDER DISORDER [None]
  - CHOLECYSTITIS CHRONIC [None]
